FAERS Safety Report 6504493-5 (Version None)
Quarter: 2009Q4

REPORT INFORMATION
  Report Type: 
  Country: None (occurrence: None)
  Receive Date: 20091217
  Receipt Date: 20091201
  Transmission Date: 20100525
  Serious: Yes (Hospitalization, Other)
  Sender: FDA-Public Use
  Company Number: CZ-GENENTECH-295854

PATIENT
  Age: 44 Year
  Sex: Male

DRUGS (2)
  1. XOLAIR [Suspect]
     Indication: DRUG USE FOR UNKNOWN INDICATION
     Dosage: 225 MG, Q2W
     Dates: start: 20090505
  2. XOLAIR [Suspect]
     Dosage: 225 MG, Q2W
     Dates: start: 20091020

REACTIONS (2)
  - ATRIAL FIBRILLATION [None]
  - SURGERY [None]
